FAERS Safety Report 6465064-2 (Version None)
Quarter: 2009Q4

REPORT INFORMATION
  Report Type: 
  Country: None (occurrence: None)
  Receive Date: 20091201
  Receipt Date: 20091117
  Transmission Date: 20100525
  Serious: Yes (Hospitalization)
  Sender: FDA-Public Use
  Company Number: IT-MYLANLABS-2009S1019857

PATIENT
  Age: 77 Year
  Sex: Male

DRUGS (7)
  1. ENOXAPARIN SODIUM [Suspect]
     Indication: DEEP VEIN THROMBOSIS
  2. ENOXAPARIN SODIUM [Suspect]
  3. ROPIVACAINE [Suspect]
     Indication: ANALGESIC THERAPY
     Dosage: 5 MG/ML ROPIVACAINE 25ML
     Route: 030
  4. ROPIVACAINE [Suspect]
     Indication: POSTOPERATIVE ANALGESIA
     Dosage: 5 MG/ML ROPIVACAINE 25ML
     Route: 030
  5. ROPIVACAINE [Suspect]
     Dosage: 2 MG/ML ROPIVACAINE INFUSED AT 8 ML/H
     Route: 030
  6. ROPIVACAINE [Suspect]
     Dosage: 2 MG/ML ROPIVACAINE INFUSED AT 8 ML/H
     Route: 030
  7. CLONIDINE [Suspect]
     Indication: ANALGESIC THERAPY

REACTIONS (1)
  - RETROPERITONEAL HAEMATOMA [None]
